FAERS Safety Report 6603316-3 (Version None)
Quarter: 2010Q1

REPORT INFORMATION
  Report Type: 
  Country: None (occurrence: None)
  Receive Date: 20100226
  Receipt Date: 20090209
  Transmission Date: 20100710
  Serious: No
  Sender: FDA-Public Use
  Company Number: A0764327A

PATIENT
  Age: 29 Year
  Sex: Female

DRUGS (3)
  1. VALTREX [Suspect]
     Indication: DRUG USE FOR UNKNOWN INDICATION
     Route: 048
  2. AVONEX [Concomitant]
  3. BIRTH CONTROL [Concomitant]
     Route: 048

REACTIONS (1)
  - DRUG SCREEN FALSE POSITIVE [None]
